FAERS Safety Report 15821775 (Version 1)
Quarter: 2019Q1

REPORT INFORMATION
  Report Type: Spontaneous
  Country: US (occurrence: US)
  Receive Date: 20190114
  Receipt Date: 20190114
  Transmission Date: 20190417
  Serious: Yes (Hospitalization, Disabling, Other)
  Sender: FDA-Public Use
  Company Number: None

PATIENT
  Age: 71 Year
  Sex: Female
  Weight: 76.5 kg

DRUGS (10)
  1. METOPROLOL. [Concomitant]
     Active Substance: METOPROLOL
  2. OXCARBAZEPINE. [Concomitant]
     Active Substance: OXCARBAZEPINE
  3. OXYCONTIN [Suspect]
     Active Substance: OXYCODONE HYDROCHLORIDE
     Indication: PROCEDURAL PAIN
     Dosage: ?          QUANTITY:2 TABLET(S);?
     Route: 048
     Dates: start: 20120305, end: 20180131
  4. VALSARTAN. [Concomitant]
     Active Substance: VALSARTAN
  5. BUPROPION. [Concomitant]
     Active Substance: BUPROPION
  6. CENTRUM VITAMINS [Concomitant]
  7. OXYCODONE [Suspect]
     Active Substance: OXYCODONE
     Indication: PROCEDURAL PAIN
     Dosage: ?          QUANTITY:1 TABLET(S);?
     Route: 048
     Dates: start: 20120305, end: 20181231
  8. ZOLPIDEM [Concomitant]
     Active Substance: ZOLPIDEM\ZOLPIDEM TARTRATE
  9. JANUVIA [Concomitant]
     Active Substance: SITAGLIPTIN PHOSPHATE
  10. SUBOXONE [Concomitant]
     Active Substance: BUPRENORPHINE HYDROCHLORIDE\NALOXONE HYDROCHLORIDE

REACTIONS (23)
  - Confusional state [None]
  - Loss of employment [None]
  - Nausea [None]
  - Loss of libido [None]
  - Amnesia [None]
  - Road traffic accident [None]
  - Fatigue [None]
  - Disability [None]
  - Impaired work ability [None]
  - Partner stress [None]
  - Dyspnoea [None]
  - Heart rate irregular [None]
  - Palpitations [None]
  - Dizziness [None]
  - Intentional product use issue [None]
  - Feeling abnormal [None]
  - Depression [None]
  - Somnolence [None]
  - Chest pain [None]
  - Asthenia [None]
  - Economic problem [None]
  - Emotional distress [None]
  - Suicidal ideation [None]

NARRATIVE: CASE EVENT DATE: 20180815
